FAERS Safety Report 7628126-X (Version None)
Quarter: 2011Q3

REPORT INFORMATION
  Report Type: 
  Country: None (occurrence: None)
  Receive Date: 20110720
  Receipt Date: 20110720
  Transmission Date: 20111222
  Serious: Yes (Death)
  Sender: FDA-Public Use
  Company Number: None

PATIENT
  Age: 79 Year
  Sex: Male

DRUGS (1)
  1. REVLIMID [Suspect]
     Indication: MULTIPLE MYELOMA
     Dosage: REVLIMID DAILY X21D/28D ORALLY
     Route: 048
     Dates: start: 20110201, end: 20110701

REACTIONS (2)
  - PNEUMONIA [None]
  - PANCYTOPENIA [None]
